FAERS Safety Report 8255229-1 (Version None)
Quarter: 2012Q1

REPORT INFORMATION
  Report Type: 
  Country: None (occurrence: None)
  Receive Date: 20120322
  Receipt Date: 20111222
  Transmission Date: 20120608
  Serious: Yes (Hospitalization)
  Sender: FDA-Public Use
  Company Number: UTC-013881

PATIENT
  Age: 62 Year
  Sex: Male

DRUGS (2)
  1. TYVASO [Suspect]
     Indication: PULMONARY ARTERIAL HYPERTENSION
     Dosage: 54 MCG, INHALATION
     Route: 055
     Dates: start: 20100907
  2. ADCIRCA [Concomitant]

REACTIONS (1)
  - LUNG DISORDER [None]
